FAERS Safety Report 5223419-8 (Version None)
Quarter: 2007Q1

REPORT INFORMATION
  Report Type: 
  Country: None (occurrence: None)
  Receive Date: 20070124
  Receipt Date: 20070111
  Transmission Date: 20070707
  Serious: Yes (Other)
  Sender: FDA-Public Use
  Company Number: 234892

PATIENT
  Sex: Female
  Weight: 98 kg

DRUGS (3)
  1. XOLAIR [Suspect]
     Indication: DRUG USE FOR UNKNOWN INDICATION
  2. MEDICATION (UNK INGREDIENT) (GENERIC COMPONENTS(S) NOT KNOWN) [Concomitant]
  3. PULMICORT [Concomitant]

REACTIONS (1)
  - HEADACHE [None]
